FAERS Safety Report 4722258-1 (Version None)
Quarter: 2005Q3

REPORT INFORMATION
  Report Type: 
  Country: None (occurrence: None)
  Receive Date: 20050722
  Receipt Date: 20040923
  Transmission Date: 20060218
  Serious: No
  Sender: FDA-Public Use
  Company Number: US-GLAXOSMITHKLINE-A0527109A

PATIENT
  Age: 70 Year
  Sex: Female

DRUGS (14)
  1. AVANDIA [Suspect]
     Dosage: 4MG PER DAY
     Route: 048
     Dates: start: 20040401
  2. PREVACID [Concomitant]
  3. ALLEGRA [Concomitant]
  4. COZAAR [Concomitant]
  5. NEURONTIN [Concomitant]
  6. PREMARIN [Concomitant]
  7. PRAVACHOL [Concomitant]
  8. MIACALCIN [Concomitant]
  9. FLONASE [Concomitant]
  10. NITROGLYCERIN [Concomitant]
  11. NITROGLYCERIN SPRAY [Concomitant]
  12. KU-ZYME [Concomitant]
  13. ICAPS [Concomitant]
  14. VIACTIV [Concomitant]

REACTIONS (3)
  - BLOOD CHOLESTEROL INCREASED [None]
  - BLOOD PRESSURE INCREASED [None]
  - FLUID RETENTION [None]
